FAERS Safety Report 7288693-5 (Version None)
Quarter: 2011Q1

REPORT INFORMATION
  Report Type: 
  Country: None (occurrence: None)
  Receive Date: 20110208
  Receipt Date: 20110208
  Transmission Date: 20110831
  Serious: Yes (Hospitalization)
  Sender: FDA-Public Use
  Company Number: None

PATIENT
  Age: 63 Year
  Sex: Female

DRUGS (12)
  1. POTASSIUM CHLORIDE [Concomitant]
  2. AMLODIPINE BESYLATE [Concomitant]
  3. METOPROLOL TARTRATE [Concomitant]
  4. HUMALOG [Concomitant]
  5. QUINAPRIL [Suspect]
     Indication: LIVER INJURY
     Dosage: 40 MG PO QD
     Route: 048
     Dates: start: 20051101, end: 20080118
  6. PAXIL [Concomitant]
  7. NEXIUM [Concomitant]
  8. GABAPENTIN [Concomitant]
  9. TIOTROPIUM BROMIDE [Concomitant]
  10. HYDROCHLOROTHIAZIDE [Concomitant]
  11. LANTUS [Concomitant]
  12. ATENOLOL [Concomitant]

REACTIONS (10)
  - JAUNDICE [None]
  - PYREXIA [None]
  - NAUSEA [None]
  - DIARRHOEA [None]
  - ASTHENIA [None]
  - SYNCOPE [None]
  - ASPARTATE AMINOTRANSFERASE INCREASED [None]
  - VOMITING [None]
  - BLOOD ALKALINE PHOSPHATASE INCREASED [None]
  - CHILLS [None]
